FAERS Safety Report 21659613 (Version 2)
Quarter: 2023Q1

REPORT INFORMATION
  Report Type: Report from Study
  Country: US (occurrence: US)
  Receive Date: 20221129
  Receipt Date: 20230102
  Transmission Date: 20230417
  Serious: Yes (Other)
  Sender: FDA-Public Use
  Company Number: US-ABBVIE-4183445

PATIENT
  Sex: Female

DRUGS (9)
  1. HUMIRA [Suspect]
     Active Substance: ADALIMUMAB
     Indication: Rheumatoid arthritis
     Dosage: CITRATE FREE
     Route: 058
  2. HUMIRA [Suspect]
     Active Substance: ADALIMUMAB
  3. PFIZER-BIONTECH COVID-19 VACCINE [Concomitant]
     Active Substance: TOZINAMERAN
     Indication: COVID-19 immunisation
     Dosage: 1 IN ONCE
     Route: 030
  4. NEPHRAMINE [Concomitant]
     Active Substance: CYSTEINE\CYSTEINE HYDROCHLORIDE\HISTIDINE\ISOLEUCINE\LEUCINE\LYSINE\LYSINE ACETATE\METHIONINE\PHENYL
     Indication: Product used for unknown indication
     Dosage: INCREASE IN DOSAGE
  5. NIFEDIPINE [Suspect]
     Active Substance: NIFEDIPINE
     Indication: Blood pressure management
     Route: 065
  6. NIFEDIPINE [Suspect]
     Active Substance: NIFEDIPINE
     Indication: Blood pressure management
     Route: 065
  7. IRBESARTAN [Suspect]
     Active Substance: IRBESARTAN
     Indication: Product used for unknown indication
     Route: 065
  8. IRBESARTAN [Suspect]
     Active Substance: IRBESARTAN
     Indication: Product used for unknown indication
     Route: 065
  9. IRBESARTAN [Suspect]
     Active Substance: IRBESARTAN
     Indication: Product used for unknown indication
     Route: 065

REACTIONS (8)
  - Skin cancer [Unknown]
  - Hypertension [Recovering/Resolving]
  - Skin papilloma [Unknown]
  - Dizziness [Unknown]
  - Peripheral swelling [Unknown]
  - Arthralgia [Unknown]
  - Skin infection [Unknown]
  - Skin exfoliation [Unknown]
